FAERS Safety Report 9275062 (Version 2)
Quarter: 2013Q3

REPORT INFORMATION
  Report Type: Report from Study
  Country: US (occurrence: US)
  Receive Date: 20130507
  Receipt Date: 20130701
  Transmission Date: 20140515
  Serious: Yes (Death, Hospitalization)
  Sender: FDA-Public Use
  Company Number: PHEH2013US009872

PATIENT
  Age: 83 Year
  Sex: Male
  Weight: 59.5 kg

DRUGS (1)
  1. GLEEVEC [Suspect]
     Indication: MALIGNANT MELANOMA
     Dosage: 400 MG, DAILY
     Route: 048
     Dates: start: 201210, end: 20130430

REACTIONS (5)
  - Pneumonia [Fatal]
  - Sepsis [Fatal]
  - Renal failure [Fatal]
  - Myocardial infarction [Fatal]
  - Respiratory failure [Fatal]
